FAERS Safety Report 5374631-9 (Version None)
Quarter: 2007Q2

REPORT INFORMATION
  Report Type: 
  Country: None (occurrence: None)
  Receive Date: 20070627
  Receipt Date: 20070420
  Transmission Date: 20071010
  Serious: Yes (Hospitalization)
  Sender: FDA-Public Use
  Company Number: 494198

PATIENT
  Sex: Female

DRUGS (2)
  1. XELODA [Suspect]
     Indication: BREAST CANCER
  2. LAPATINIB (LAPATINIB) [Suspect]
     Indication: BREAST CANCER

REACTIONS (1)
  - DIARRHOEA [None]
